FAERS Safety Report 7489621-X (Version None)
Quarter: 2011Q2

REPORT INFORMATION
  Report Type: 
  Country: None (occurrence: None)
  Receive Date: 20110519
  Receipt Date: 20110509
  Transmission Date: 20111010
  Serious: No
  Sender: FDA-Public Use
  Company Number: US-BIOGENIDEC-2010BI031947

PATIENT
  Age: 51 Year
  Sex: Male

DRUGS (2)
  1. TYSABRI [Suspect]
     Indication: MULTIPLE SCLEROSIS
     Route: 042
     Dates: start: 20100402
  2. AVONEX [Concomitant]
     Indication: MULTIPLE SCLEROSIS
     Route: 030
     Dates: start: 20100301

REACTIONS (7)
  - PRURITUS [None]
  - TEMPERATURE INTOLERANCE [None]
  - FATIGUE [None]
  - URTICARIA [None]
  - RASH [None]
  - OROPHARYNGEAL PAIN [None]
  - DRUG INEFFECTIVE [None]
